FAERS Safety Report 21631388 (Version 1)
Quarter: 2022Q4

REPORT INFORMATION
  Report Type: Spontaneous
  Country: RO (occurrence: RO)
  Receive Date: 20221123
  Receipt Date: 20221123
  Transmission Date: 20230113
  Serious: Yes (Other)
  Sender: FDA-Public Use
  Company Number: RO-drreddys-LIT/ROM/22/0157475

PATIENT
  Age: 62 Year
  Sex: Male

DRUGS (4)
  1. CAPECITABINE [Suspect]
     Active Substance: CAPECITABINE
     Indication: Carcinoid syndrome
  2. TEMOZOLOMIDE [Suspect]
     Active Substance: TEMOZOLOMIDE
     Indication: Carcinoid syndrome
  3. EVEROLIMUS [Suspect]
     Active Substance: EVEROLIMUS
     Indication: Carcinoid syndrome
  4. LANREOTIDE [Suspect]
     Active Substance: LANREOTIDE
     Indication: Carcinoid syndrome

REACTIONS (6)
  - Disease progression [Unknown]
  - Carcinoid syndrome [Unknown]
  - Neoplasm progression [Unknown]
  - Metastases to liver [Unknown]
  - Hepatic neuroendocrine tumour [Unknown]
  - Product use in unapproved indication [Unknown]
